FAERS Safety Report 23753530 (Version 2)
Quarter: 2024Q2

REPORT INFORMATION
  Report Type: Report from Study
  Country: US (occurrence: US)
  Receive Date: 20240417
  Receipt Date: 20240417
  Transmission Date: 20240716
  Serious: Yes (Death)
  Sender: FDA-Public Use
  Company Number: US-BAYER-2024A055747

PATIENT
  Age: 51 Year
  Sex: Female

DRUGS (41)
  1. ADEMPAS [Suspect]
     Active Substance: RIOCIGUAT
     Indication: Pulmonary hypertension
     Dosage: 0.5 MG, TID
     Dates: start: 20240319
  2. ADEMPAS [Suspect]
     Active Substance: RIOCIGUAT
     Indication: Pulmonary arterial hypertension
  3. ATORVASTATIN CALCIUM [Concomitant]
     Active Substance: ATORVASTATIN CALCIUM
  4. INSULIN GLARGINE-YFGN [Concomitant]
     Active Substance: INSULIN GLARGINE-YFGN
  5. INSULIN ASPART [Concomitant]
     Active Substance: INSULIN ASPART
  6. DEXTROSE [Concomitant]
     Active Substance: DEXTROSE\DEXTROSE MONOHYDRATE
  7. IBUPROFEN [Concomitant]
     Active Substance: IBUPROFEN
  8. DEXTROSE [Concomitant]
     Active Substance: DEXTROSE\DEXTROSE MONOHYDRATE
  9. DOBUTAMINE HYDROCHLORIDE [Concomitant]
     Active Substance: DOBUTAMINE HYDROCHLORIDE
  10. INSULIN LISPRO [Concomitant]
     Active Substance: INSULIN LISPRO
  11. TRAZODONE HCL [Concomitant]
     Active Substance: TRAZODONE HYDROCHLORIDE
  12. POTASSIUM CHLORIDE [Concomitant]
     Active Substance: POTASSIUM CHLORIDE
  13. ACETAMINOPHEN [Concomitant]
     Active Substance: ACETAMINOPHEN
  14. METHOCARBAMOL [Concomitant]
     Active Substance: METHOCARBAMOL
  15. NARCAN [Concomitant]
     Active Substance: NALOXONE HYDROCHLORIDE
  16. OXYCODONE HYDROCHLORIDE [Concomitant]
     Active Substance: OXYCODONE HYDROCHLORIDE
  17. NYSTATIN [Concomitant]
     Active Substance: NYSTATIN
  18. GLUCAGON [Concomitant]
     Active Substance: GLUCAGON\GLUCAGON HYDROCHLORIDE\WATER
  19. LASIX [Concomitant]
     Active Substance: FUROSEMIDE
  20. OPSUMIT [Concomitant]
     Active Substance: MACITENTAN
  21. LISINOPRIL [Concomitant]
     Active Substance: LISINOPRIL
  22. ROBITUSSIN NIGHT COUGH COLD + FLU [Concomitant]
  23. ALBUTEROL SULFATE [Concomitant]
     Active Substance: ALBUTEROL SULFATE
  24. MELATONIN [Concomitant]
     Active Substance: MELATONIN
  25. GLUCAGON HCL [Concomitant]
  26. ONDANSETRON HYDROCHLORIDE [Concomitant]
     Active Substance: ONDANSETRON HYDROCHLORIDE
  27. SODIUM PHOSPHATE [Concomitant]
     Active Substance: SODIUM PHOSPHATE
  28. DEXTROSE [Concomitant]
     Active Substance: DEXTROSE\DEXTROSE MONOHYDRATE
  29. MAGNESIUM SULFATE [Concomitant]
     Active Substance: MAGNESIUM SULFATE\MAGNESIUM SULFATE HEPTAHYDRATE
  30. METFORMIN HYDROCHLORIDE [Concomitant]
     Active Substance: METFORMIN HYDROCHLORIDE
  31. SPIRONOLACTONE [Concomitant]
     Active Substance: SPIRONOLACTONE
  32. BUMETANIDE [Concomitant]
     Active Substance: BUMETANIDE
  33. LIDOCAINE [Concomitant]
     Active Substance: LIDOCAINE
  34. GUAIFENESIN [Concomitant]
     Active Substance: GUAIFENESIN
  35. DIGOXIN [Concomitant]
     Active Substance: DIGOXIN
  36. MINERALS\VITAMINS [Concomitant]
     Active Substance: MINERALS\VITAMINS
  37. SENNA [Concomitant]
     Active Substance: SENNA LEAF\SENNOSIDES\SENNOSIDES A AND B
  38. POLYETHYLENE GLYCOLS [Concomitant]
     Active Substance: POLYETHYLENE GLYCOLS
  39. HYDROXYZINE HYDROCHLORIDE [Concomitant]
     Active Substance: HYDROXYZINE HYDROCHLORIDE
  40. CALCIUM GLUCONATE [Concomitant]
     Active Substance: CALCIUM GLUCONATE
  41. IRON [Concomitant]
     Active Substance: IRON

REACTIONS (1)
  - Death [Fatal]

NARRATIVE: CASE EVENT DATE: 20240415
